FAERS Safety Report 12446938 (Version 1)
Quarter: 2016Q2

REPORT INFORMATION
  Report Type: Spontaneous
  Country: US (occurrence: None)
  Receive Date: 20160607
  Receipt Date: 20160607
  Transmission Date: 20160815
  Serious: Yes (Other)
  Sender: FDA-Public Use
  Company Number: None

PATIENT
  Age: 43 Year
  Sex: Male
  Weight: 90.72 kg

DRUGS (3)
  1. SUDAFED [Suspect]
     Active Substance: PSEUDOEPHEDRINE HYDROCHLORIDE
     Indication: RHINITIS
     Dosage: 30 TABLET(S) EVERY 12 HOURS TAKEN BY MOUTH
     Route: 048
     Dates: start: 20060601, end: 20160606
  2. NASACORT [Concomitant]
     Active Substance: TRIAMCINOLONE ACETONIDE
  3. ALLEGRA-D [Suspect]
     Active Substance: FEXOFENADINE\PSEUDOEPHEDRINE

REACTIONS (1)
  - Erectile dysfunction [None]

NARRATIVE: CASE EVENT DATE: 20160601
